FAERS Safety Report 7985724-1 (Version None)
Quarter: 2011Q4

REPORT INFORMATION
  Report Type: 
  Country: None (occurrence: None)
  Receive Date: 20111216
  Receipt Date: 20111216
  Transmission Date: 20120403
  Serious: Yes (Other)
  Sender: FDA-Public Use
  Company Number: None

PATIENT
  Sex: Male
  Weight: 25.854 kg

DRUGS (1)
  1. AMOXICILLIN [Suspect]
     Indication: SINUSITIS
     Dates: start: 20111213, end: 20111213

REACTIONS (7)
  - PRURITUS [None]
  - SWELLING FACE [None]
  - PRODUCT TASTE ABNORMAL [None]
  - ERYTHEMA [None]
  - OEDEMA PERIPHERAL [None]
  - FEELING HOT [None]
  - RASH [None]
